FAERS Safety Report 22339440 (Version 1)
Quarter: 2023Q2

REPORT INFORMATION
  Report Type: Spontaneous
  Country: CA (occurrence: CA)
  Receive Date: 20230518
  Receipt Date: 20230518
  Transmission Date: 20230721
  Serious: Yes (Other)
  Sender: FDA-Public Use
  Company Number: CA-PFIZER INC-2020455244

PATIENT
  Age: 73 Year
  Sex: Female

DRUGS (5)
  1. XELJANZ [Suspect]
     Active Substance: TOFACITINIB CITRATE
     Indication: Psoriatic arthropathy
     Dosage: 5 MG, 2X/DAY
     Route: 048
     Dates: start: 20201028
  2. DENOSUMAB [Concomitant]
     Active Substance: DENOSUMAB
     Dosage: UNK
  3. ENBREL [Concomitant]
     Active Substance: ETANERCEPT
     Indication: Psoriatic arthropathy
     Dosage: UNK
     Route: 065
  4. METHOTREXATE [Concomitant]
     Active Substance: METHOTREXATE
     Indication: Psoriatic arthropathy
     Dosage: 10 MG, WEEKLY
     Route: 048
  5. METHOTREXATE [Concomitant]
     Active Substance: METHOTREXATE
     Dosage: 10 MG, 1X/DAY
     Route: 048

REACTIONS (12)
  - Cataract [Not Recovered/Not Resolved]
  - Circumstance or information capable of leading to medication error [Unknown]
  - Proctitis herpes [Unknown]
  - Pain in extremity [Not Recovered/Not Resolved]
  - Eczema [Not Recovered/Not Resolved]
  - Emotional distress [Unknown]
  - Skin atrophy [Unknown]
  - Pruritus [Unknown]
  - Skin haemorrhage [Unknown]
  - Skin wound [Not Recovered/Not Resolved]
  - Wound secretion [Not Recovered/Not Resolved]
  - Impaired healing [Not Recovered/Not Resolved]

NARRATIVE: CASE EVENT DATE: 20220901
